FAERS Safety Report 9120319 (Version 1)
Quarter: 2013Q1

REPORT INFORMATION
  Report Type: Spontaneous
  Country: FR (occurrence: FR)
  Receive Date: 20130226
  Receipt Date: 20130226
  Transmission Date: 20140127
  Serious: Yes (Other)
  Sender: FDA-Public Use
  Company Number: FR-MERCK-1302FRA009132

PATIENT
  Age: 52 Year
  Sex: Male
  Weight: 107 kg

DRUGS (3)
  1. EZETROL [Suspect]
     Indication: DYSLIPIDAEMIA
     Dosage: UNK
     Route: 048
     Dates: start: 20120925, end: 20121005
  2. AMLOR [Concomitant]
     Indication: HYPERTENSION
     Dosage: UNK
     Dates: start: 2007, end: 20130101
  3. APROVEL [Concomitant]
     Indication: HYPERTENSION
     Dosage: UNK
     Dates: start: 2007, end: 20130101

REACTIONS (2)
  - Hepatocellular injury [Unknown]
  - Gamma-glutamyltransferase increased [Unknown]
